FAERS Safety Report 18620509 (Version 1)
Quarter: 2020Q4

REPORT INFORMATION
  Report Type: Report from Study
  Country: US (occurrence: US)
  Receive Date: 20201215
  Receipt Date: 20201215
  Transmission Date: 20210114
  Serious: Yes (Hospitalization, Other)
  Sender: FDA-Public Use
  Company Number: US-TAKEDA-US202009158

PATIENT
  Sex: Female

DRUGS (4)
  1. ICATIBANT [Suspect]
     Active Substance: ICATIBANT ACETATE
     Indication: SYSTEMIC LUPUS ERYTHEMATOSUS
     Dosage: 30 MILLIGRAM/ 3 MILLILITRE
     Route: 065
     Dates: start: 20181009
  2. ICATIBANT [Suspect]
     Active Substance: ICATIBANT ACETATE
     Indication: SYSTEMIC LUPUS ERYTHEMATOSUS
     Dosage: 30 MILLIGRAM/ 3 MILLILITRE
     Route: 065
     Dates: start: 20181009
  3. ICATIBANT [Suspect]
     Active Substance: ICATIBANT ACETATE
     Dosage: 30 MILLIGRAM/ 3 MILLILITRE
     Route: 058
     Dates: start: 202010
  4. ICATIBANT [Suspect]
     Active Substance: ICATIBANT ACETATE
     Dosage: 30 MILLIGRAM/ 3 MILLILITRE
     Route: 058
     Dates: start: 202010

REACTIONS (2)
  - Intentional product use issue [Unknown]
  - Vascular device infection [Unknown]
